FAERS Safety Report 19575067 (Version 1)
Quarter: 2021Q3

REPORT INFORMATION
  Report Type: Spontaneous
  Country: US (occurrence: US)
  Receive Date: 20210716
  Receipt Date: 20210716
  Transmission Date: 20211014
  Serious: Yes (Disabling)
  Sender: FDA-Public Use
  Company Number: None

PATIENT
  Age: 38 Year
  Sex: Male
  Weight: 77.4 kg

DRUGS (13)
  1. GLYCINE. [Concomitant]
     Active Substance: GLYCINE
  2. VITAMIN B COMPLEX [Concomitant]
     Active Substance: CYANOCOBALAMIN\DEXPANTHENOL\NIACINAMIDE\PYRIDOXINE HYDROCHLORIDE\RIBOFLAVIN 5^-PHOSPHATE SODIUM\THIAMINE HYDROCHLORIDE\VITAMIN B COMPLEX
  3. MSM [Concomitant]
     Active Substance: DIMETHYL SULFONE
  4. TAURINE [Concomitant]
     Active Substance: TAURINE
  5. GABA [Concomitant]
     Active Substance: HOMEOPATHICS
  6. PHENYLALANINE [Concomitant]
     Active Substance: PHENYLALANINE
  7. LION^S MAIN POWDER [Concomitant]
  8. WELLBUTRIN [Concomitant]
     Active Substance: BUPROPION HYDROCHLORIDE
  9. INVEGA [Suspect]
     Active Substance: PALIPERIDONE
     Indication: MAJOR DEPRESSION
     Route: 048
     Dates: start: 20130101, end: 20130601
  10. MUCUNA PRURIENS [Concomitant]
     Active Substance: HERBALS
  11. BANABA LEAF EXTRACT [Concomitant]
  12. INVEGA [Suspect]
     Active Substance: PALIPERIDONE
     Indication: SCHIZOTYPAL PERSONALITY DISORDER
     Route: 048
     Dates: start: 20130101, end: 20130601
  13. COENZYME Q10 [Concomitant]
     Active Substance: DIETARY SUPPLEMENT\UBIDECARENONE

REACTIONS (6)
  - Weight increased [None]
  - Restless legs syndrome [None]
  - Social problem [None]
  - Mental disorder [None]
  - Musculoskeletal stiffness [None]
  - Joint swelling [None]

NARRATIVE: CASE EVENT DATE: 20130101
